FAERS Safety Report 25408963 (Version 1)
Quarter: 2025Q2

REPORT INFORMATION
  Report Type: Spontaneous
  Country: US (occurrence: US)
  Receive Date: 20250607
  Receipt Date: 20250607
  Transmission Date: 20250717
  Serious: Yes (Death, Congenital Anomaly)
  Sender: AMGEN
  Company Number: US-AMGEN-USASP2025109566

PATIENT

DRUGS (1)
  1. PREDNISONE [Suspect]
     Active Substance: PREDNISONE
     Indication: Exposure during pregnancy
     Route: 064

REACTIONS (14)
  - Heart disease congenital [Fatal]
  - Dandy-Walker syndrome [Unknown]
  - Transposition of the great vessels [Unknown]
  - Duodenal atresia [Unknown]
  - Fallot^s tetralogy [Unknown]
  - Congenital hydronephrosis [Unknown]
  - Foetal cystic hygroma [Unknown]
  - Hypospadias [Unknown]
  - Tethered oral tissue [Unknown]
  - Craniofacial deformity [Unknown]
  - Laryngomalacia [Unknown]
  - Cryptorchism [Unknown]
  - Cardiac murmur [Unknown]
  - Foetal exposure during pregnancy [Unknown]
